FAERS Safety Report 12582985 (Version 2)
Quarter: 2016Q3

REPORT INFORMATION
  Report Type: Report from Study
  Country: FR (occurrence: FR)
  Receive Date: 20160722
  Receipt Date: 20160912
  Transmission Date: 20161109
  Serious: Yes (Hospitalization)
  Sender: FDA-Public Use
  Company Number: FR-CELGENEUS-FRA-2015072354

PATIENT
  Age: 64 Year
  Sex: Female
  Weight: 39 kg

DRUGS (6)
  1. DOXORUBICIN [Suspect]
     Active Substance: DOXORUBICIN
     Indication: PERIPHERAL T-CELL LYMPHOMA UNSPECIFIED
     Route: 065
     Dates: start: 20150506, end: 20150625
  2. ROMIDEPSIN [Suspect]
     Active Substance: ROMIDEPSIN
     Indication: PERIPHERAL T-CELL LYMPHOMA UNSPECIFIED
     Route: 041
     Dates: start: 20150506, end: 20150716
  3. PREDNISONE. [Suspect]
     Active Substance: PREDNISONE
     Indication: PERIPHERAL T-CELL LYMPHOMA UNSPECIFIED
     Route: 065
     Dates: start: 20150506, end: 20150625
  4. ROMIDEPSIN [Suspect]
     Active Substance: ROMIDEPSIN
     Route: 041
     Dates: start: 20150723
  5. VINCRISTINE [Suspect]
     Active Substance: VINCRISTINE
     Indication: PERIPHERAL T-CELL LYMPHOMA UNSPECIFIED
     Route: 065
     Dates: start: 20150506, end: 20150625
  6. CYCLOPHOSPHAMIDE. [Suspect]
     Active Substance: CYCLOPHOSPHAMIDE
     Indication: PERIPHERAL T-CELL LYMPHOMA UNSPECIFIED
     Route: 065
     Dates: start: 20150506, end: 20150625

REACTIONS (3)
  - Oesophagitis [Recovered/Resolved]
  - Escherichia bacteraemia [Recovered/Resolved]
  - Klebsiella bacteraemia [Recovered/Resolved]

NARRATIVE: CASE EVENT DATE: 20150627
